FAERS Safety Report 19463062 (Version 1)
Quarter: 2021Q2

REPORT INFORMATION
  Report Type: Spontaneous
  Country: US (occurrence: US)
  Receive Date: 20210625
  Receipt Date: 20210625
  Transmission Date: 20210717
  Serious: Yes (Other)
  Sender: FDA-Public Use
  Company Number: US-GW PHARMA-202106USGW02996

PATIENT

DRUGS (2)
  1. EPIDIOLEX [Suspect]
     Active Substance: CANNABIDIOL
     Indication: SEIZURE
     Dosage: 55.12 MG/KG/DAY, 125 MILLIGRAM, BID
     Route: 048
     Dates: start: 202103
  2. AFINITOR [Concomitant]
     Active Substance: EVEROLIMUS
     Indication: PRODUCT USED FOR UNKNOWN INDICATION
     Dosage: 3 MILLIGRAM, QD (FIRST SHIPPED ON 17?JUN?2021)
     Route: 065
     Dates: start: 202106

REACTIONS (2)
  - Prescribed overdose [Unknown]
  - Seizure [Unknown]

NARRATIVE: CASE EVENT DATE: 2021
